FAERS Safety Report 8376282-0 (Version None)
Quarter: 2012Q1

REPORT INFORMATION
  Report Type: 
  Country: None (occurrence: None)
  Receive Date: 20120323
  Receipt Date: 20110714
  Transmission Date: 20120608
  Serious: Yes (Hospitalization, Other)
  Sender: FDA-Public Use
  Company Number: 163-21880-11053559

PATIENT
  Age: 81 Year
  Sex: Male

DRUGS (4)
  1. REVLIMID [Suspect]
     Indication: MULTIPLE MYELOMA
     Dosage: 15 MG, DAILY, PO ; 5 MG, 1 IN 1 D, PO
     Route: 048
     Dates: start: 20100801
  2. REVLIMID [Suspect]
     Indication: MULTIPLE MYELOMA
     Dosage: 15 MG, DAILY, PO ; 5 MG, 1 IN 1 D, PO
     Route: 048
     Dates: start: 20110401
  3. VELCADE [Concomitant]
  4. DEXAMETHASONE [Concomitant]

REACTIONS (3)
  - LUMBAR VERTEBRAL FRACTURE [None]
  - FALL [None]
  - IMPAIRED HEALING [None]
